FAERS Safety Report 7141461-7 (Version None)
Quarter: 2010Q4

REPORT INFORMATION
  Report Type: 
  Country: None (occurrence: None)
  Receive Date: 20101207
  Receipt Date: 20101129
  Transmission Date: 20110411
  Serious: Yes (Hospitalization)
  Sender: FDA-Public Use
  Company Number: DE-BAXTER-2010BH028180

PATIENT
  Age: 81 Year
  Sex: Female
  Weight: 78 kg

DRUGS (4)
  1. GAMMAGARD LIQUID [Suspect]
     Indication: RHEUMATOID ARTHRITIS
     Route: 042
     Dates: start: 20101111, end: 20101111
  2. GAMMAGARD LIQUID [Suspect]
     Indication: OFF LABEL USE
     Route: 042
     Dates: start: 20101111, end: 20101111
  3. CORTICOSTEROIDS [Concomitant]
  4. ANTIHYPERTENSIVES [Concomitant]
     Indication: HYPERTENSION

REACTIONS (4)
  - BLOOD PRESSURE DECREASED [None]
  - MUSCLE TWITCHING [None]
  - SOMNOLENCE [None]
  - UNRESPONSIVE TO STIMULI [None]
